FAERS Safety Report 10417493 (Version 7)
Quarter: 2015Q1

REPORT INFORMATION
  Report Type: Report from Study
  Country: CZ (occurrence: CZ)
  Receive Date: 20140829
  Receipt Date: 20150214
  Transmission Date: 20150720
  Serious: Yes (Hospitalization)
  Sender: FDA-Public Use
  Company Number: CZ-BIOGENIDEC-2014BI087576

PATIENT
  Age: 38 Year
  Sex: Female

DRUGS (3)
  1. STILNOX [Concomitant]
     Active Substance: ZOLPIDEM TARTRATE
  2. AVONEX [Suspect]
     Active Substance: INTERFERON BETA-1A
     Indication: CLINICALLY ISOLATED SYNDROME
     Route: 030
     Dates: start: 20120220, end: 20140719
  3. VIGANTOL [Concomitant]

REACTIONS (2)
  - Abortion spontaneous [Recovered/Resolved]
  - Uterine haematoma [Recovered/Resolved]

NARRATIVE: CASE EVENT DATE: 20140909
